FAERS Safety Report 6745986-5 (Version None)
Quarter: 2010Q2

REPORT INFORMATION
  Report Type: 
  Country: None (occurrence: None)
  Receive Date: 20100528
  Receipt Date: 20100521
  Transmission Date: 20101027
  Serious: Yes (Hospitalization)
  Sender: FDA-Public Use
  Company Number: AU-PFIZER INC-2010064960

PATIENT
  Age: 54 Year
  Sex: Female
  Weight: 70 kg

DRUGS (4)
  1. CHAMPIX [Suspect]
     Indication: SMOKING CESSATION THERAPY
     Dosage: 2 MG, 1X/DAY
     Route: 048
     Dates: start: 20100420, end: 20100507
  2. DIAZEPAM [Suspect]
     Dosage: UNK
  3. TRAMADOL [Suspect]
     Dosage: UNK
  4. MIRTAZAPINE [Suspect]
     Dosage: UNK

REACTIONS (1)
  - INTENTIONAL OVERDOSE [None]
